FAERS Safety Report 21874022 (Version 1)
Quarter: 2023Q1

REPORT INFORMATION
  Report Type: Spontaneous
  Country: US (occurrence: US)
  Receive Date: 20230117
  Receipt Date: 20230117
  Transmission Date: 20230417
  Serious: No
  Sender: FDA-Public Use
  Company Number: US-NOVOPROD-975092

PATIENT
  Age: 72 Year
  Sex: Male

DRUGS (1)
  1. RYBELSUS [Suspect]
     Active Substance: SEMAGLUTIDE
     Indication: Type 2 diabetes mellitus
     Dosage: 7 MG
     Route: 048
     Dates: start: 20220831, end: 202210

REACTIONS (3)
  - Pain [Recovered/Resolved]
  - Cellulite [Unknown]
  - Pruritus [Unknown]

NARRATIVE: CASE EVENT DATE: 20220831
